FAERS Safety Report 8156150-X (Version None)
Quarter: 2012Q1

REPORT INFORMATION
  Report Type: 
  Country: None (occurrence: None)
  Receive Date: 20120222
  Receipt Date: 20120217
  Transmission Date: 20120608
  Serious: Yes (Hospitalization, Disabling, Other)
  Sender: FDA-Public Use
  Company Number: US-PFIZER INC-2010069867

PATIENT
  Sex: Female
  Weight: 74.83 kg

DRUGS (21)
  1. ATIVAN [Concomitant]
     Indication: NERVOUS SYSTEM DISORDER
     Dosage: 1 MG, 2X/DAY
     Route: 048
  2. CALCIUM CARBONATE [Concomitant]
     Indication: HYPOVITAMINOSIS
     Dosage: 1000 MG, DAILY
  3. VITAMIN B NOS [Concomitant]
     Dosage: UNK
  4. LORTAB [Concomitant]
     Dosage: 10/500 MG,
  5. LYRICA [Suspect]
     Indication: FIBROMYALGIA
     Dosage: 75 MG, 1X/DAY
     Route: 048
     Dates: start: 20090101, end: 20101001
  6. SOMA [Concomitant]
     Indication: MUSCLE SPASMS
     Dosage: 350 MG, 3X/DAY
     Route: 048
  7. METHADONE [Concomitant]
     Indication: BONE PAIN
     Dosage: 40 MG, 3X/DAY
  8. LYRICA [Suspect]
     Dosage: 200 MG, DAILY
  9. AMBIEN [Concomitant]
     Indication: SLEEP DISORDER
     Dosage: 10 MG, 1X/DAY
     Route: 048
  10. SEROQUEL [Concomitant]
     Dosage: 200 MG, 1X/DAY
  11. EFFEXOR XR [Concomitant]
     Indication: AFFECTIVE DISORDER
     Dosage: 75 MG DAILY
  12. IRON [Concomitant]
  13. LYRICA [Suspect]
     Dosage: 600 MG, DAILY
  14. NEURONTIN [Concomitant]
     Indication: AFFECTIVE DISORDER
     Dosage: UNK
  15. BUTALBITAL AND CAFFEINE AND PARACETAMOL [Concomitant]
     Indication: HEADACHE
     Dosage: UNK
  16. LYRICA [Suspect]
     Dosage: 300 MG, DAILY
  17. LYRICA [Suspect]
     Dosage: 75 MG, 3X/DAY
  18. LYRICA [Suspect]
     Dosage: 200 MG, 2X/DAY
     Route: 048
     Dates: start: 20070701, end: 20120131
  19. LEXAPRO [Concomitant]
     Dosage: 20 MG, UNK
  20. VITAMIN D [Concomitant]
     Dosage: UNK
  21. PERCOCET [Concomitant]
     Dosage: 10/325MG

REACTIONS (39)
  - LOSS OF CONSCIOUSNESS [None]
  - SKIN REACTION [None]
  - DECREASED APPETITE [None]
  - HEADACHE [None]
  - BURNING SENSATION [None]
  - PAIN [None]
  - WITHDRAWAL SYNDROME [None]
  - INSOMNIA [None]
  - NERVOUS SYSTEM DISORDER [None]
  - MALAISE [None]
  - HYPERHIDROSIS [None]
  - RASH MACULAR [None]
  - PNEUMONIA [None]
  - PAIN IN EXTREMITY [None]
  - ERYTHEMA [None]
  - FEAR [None]
  - DRUG INEFFECTIVE [None]
  - NEURALGIA [None]
  - MUSCLE TIGHTNESS [None]
  - MEMORY IMPAIRMENT [None]
  - DIZZINESS [None]
  - SEXUAL ACTIVITY INCREASED [None]
  - ABNORMAL BEHAVIOUR [None]
  - BEDRIDDEN [None]
  - FIBROMYALGIA [None]
  - MANIA [None]
  - BLOOD PRESSURE INCREASED [None]
  - TREMOR [None]
  - SACROILIITIS [None]
  - BODY HEIGHT DECREASED [None]
  - VOMITING [None]
  - LIMB DISCOMFORT [None]
  - NAUSEA [None]
  - ACTIVITIES OF DAILY LIVING IMPAIRED [None]
  - NERVOUSNESS [None]
  - IRRITABILITY [None]
  - MIGRAINE [None]
  - SLEEP DISORDER [None]
  - MYALGIA [None]
